FAERS Safety Report 4581842-9 (Version None)
Quarter: 2005Q1

REPORT INFORMATION
  Report Type: 
  Country: None (occurrence: None)
  Receive Date: 20050214
  Receipt Date: 20040318
  Transmission Date: 20050727
  Serious: No
  Sender: FDA-Public Use
  Company Number: US-GLAXOSMITHKLINE-A0503390A

PATIENT
  Sex: Female

DRUGS (2)
  1. LAMOTRIGINE [Suspect]
     Indication: BIPOLAR DISORDER
     Dosage: 50MG PER DAY
  2. ADDERALL XR 10 [Suspect]
     Indication: BIPOLAR DISORDER
     Dosage: 15MG PER DAY

REACTIONS (1)
  - SINUSITIS [None]
